FAERS Safety Report 22534585 (Version 2)
Quarter: 2023Q2

REPORT INFORMATION
  Report Type: Spontaneous
  Country: BR (occurrence: BR)
  Receive Date: 20230608
  Receipt Date: 20230623
  Transmission Date: 20230721
  Serious: Yes (Hospitalization, Other)
  Sender: FDA-Public Use
  Company Number: BR-BRISTOL-MYERS SQUIBB COMPANY-2023-078641

PATIENT
  Age: 69 Year
  Sex: Female

DRUGS (8)
  1. OPDIVO [Suspect]
     Active Substance: NIVOLUMAB
     Indication: Uveal melanoma
     Dosage: DOSE : NIVO 1 MG/KG, IPI 3MG/KG;     FREQ : 10 APR 2023: CYCLE 1?4 MAY 2023: CYCLE 2
     Dates: start: 20230410
  2. OPDIVO [Suspect]
     Active Substance: NIVOLUMAB
     Indication: Metastatic malignant melanoma
     Dosage: DOSE : NIVO 1 MG/KG, IPI 3MG/KG;     FREQ : 10 APR 2023: CYCLE 1?4 MAY 2023: CYCLE 2
     Dates: start: 20230504
  3. YERVOY [Suspect]
     Active Substance: IPILIMUMAB
     Indication: Uveal melanoma
     Dosage: DOSE : NIVO 1 MG/KG, IPI 3MG/KG;     FREQ : 10 APR 2023: CYCLE 1?4 MAY 2023: CYCLE 2
     Dates: start: 20230410
  4. YERVOY [Suspect]
     Active Substance: IPILIMUMAB
     Indication: Metastatic malignant melanoma
     Dosage: DOSE : NIVO 1 MG/KG, IPI 3MG/KG;     FREQ : 10 APR 2023: CYCLE 1?4 MAY 2023: CYCLE 2
     Dates: start: 20230504
  5. YERVOY [Suspect]
     Active Substance: IPILIMUMAB
  6. AFLIBERCEPT [Concomitant]
     Active Substance: AFLIBERCEPT
     Indication: Product used for unknown indication
  7. UNSPECIFIED INGREDIENT [Concomitant]
     Active Substance: UNSPECIFIED INGREDIENT
     Indication: Product used for unknown indication
  8. CORTICOSTEROID NOS [Concomitant]
     Active Substance: CORTICOSTEROID NOS
     Indication: Product used for unknown indication

REACTIONS (4)
  - Diarrhoea [Recovered/Resolved]
  - Hepatitis [Recovered/Resolved]
  - Colitis [Unknown]
  - Prescribed underdose [Unknown]

NARRATIVE: CASE EVENT DATE: 20230510
